FAERS Safety Report 6814944-4 (Version None)
Quarter: 2010Q2

REPORT INFORMATION
  Report Type: 
  Country: None (occurrence: None)
  Receive Date: 20100628
  Receipt Date: 20100420
  Transmission Date: 20101027
  Serious: Yes (Other)
  Sender: FDA-Public Use
  Company Number: 2010AP000828

PATIENT
  Age: 60 Year
  Sex: Female

DRUGS (13)
  1. ETODOLAC [Suspect]
  2. METFORMIN HYDROCHLORIDE [Suspect]
  3. GLIPIZIDE [Suspect]
  4. CARVEDILOL [Suspect]
  5. PLAVIX [Suspect]
     Indication: MYOCARDIAL INFARCTION
     Dosage: 75 MG; QD; PO
     Route: 048
     Dates: start: 19991201
  6. LIPITOR [Suspect]
     Indication: MYOCARDIAL INFARCTION
  7. VITAMIN D [Suspect]
  8. POTASSIUM CHLORIDE [Suspect]
  9. ISOSORBIDE [Suspect]
  10. METOPROLOL [Suspect]
  11. PRILOSEC [Suspect]
  12. ACETAMINOPHEN AND HYDROCODONE BITARTRATE [Suspect]
  13. DIPHENHYDRAMINE [Suspect]

REACTIONS (12)
  - ABDOMINAL PAIN UPPER [None]
  - ADVERSE EVENT [None]
  - BACTERAEMIA [None]
  - CHEST PAIN [None]
  - DIARRHOEA [None]
  - DIZZINESS [None]
  - DYSPNOEA [None]
  - INSOMNIA [None]
  - NAUSEA [None]
  - PAIN IN EXTREMITY [None]
  - POST PROCEDURAL INFECTION [None]
  - TOOTH EXTRACTION [None]
